FAERS Safety Report 7462612-0 (Version None)
Quarter: 2011Q2

REPORT INFORMATION
  Report Type: 
  Country: None (occurrence: None)
  Receive Date: 20110506
  Receipt Date: 20110321
  Transmission Date: 20111010
  Serious: Yes (Other)
  Sender: FDA-Public Use
  Company Number: US-BAYER-2010-002544

PATIENT
  Age: 25 Year
  Sex: Female
  Weight: 124.72 kg

DRUGS (6)
  1. VIT E [Concomitant]
  2. NEXIUM [Concomitant]
  3. YAZ [Suspect]
     Indication: MENORRHAGIA
  4. YASMIN [Suspect]
     Indication: MENORRHAGIA
  5. LORAZEPAM [Concomitant]
     Dosage: 0.5 MG, UNK
  6. LORTAB [Concomitant]
     Dosage: 7.5 MG, PRN

REACTIONS (4)
  - CHOLECYSTITIS ACUTE [None]
  - GALLBLADDER INJURY [None]
  - GASTROINTESTINAL DISORDER [None]
  - BILIARY DYSKINESIA [None]
